FAERS Safety Report 5199974-3 (Version None)
Quarter: 2007Q1

REPORT INFORMATION
  Report Type: 
  Country: None (occurrence: None)
  Receive Date: 20070103
  Receipt Date: 20061218
  Transmission Date: 20070707
  Serious: Yes (Hospitalization)
  Sender: FDA-Public Use
  Company Number: 2006-03225

PATIENT
  Age: 52 Year
  Sex: Male

DRUGS (10)
  1. VELCADE [Suspect]
     Indication: MANTLE CELL LYMPHOMA STAGE IV
     Dosage: 1.30 MG/M2, INTRAVENOUS
     Route: 042
     Dates: start: 20060731, end: 20061201
  2. RITUXAN [Suspect]
     Indication: MANTLE CELL LYMPHOMA STAGE IV
     Dates: start: 20060731, end: 20061128
  3. CYCLOPHOSPHAMIDE [Suspect]
     Indication: MANTLE CELL LYMPHOMA STAGE IV
     Dates: start: 20060731, end: 20061128
  4. DOXORUBICIN HCL [Suspect]
     Indication: MANTLE CELL LYMPHOMA STAGE IV
     Dates: start: 20060731, end: 20061128
  5. VINCRISTINE [Suspect]
     Indication: MANTLE CELL LYMPHOMA STAGE IV
     Dates: start: 20060731, end: 20061128
  6. PREDNISONE [Suspect]
     Indication: MANTLE CELL LYMPHOMA STAGE IV
     Dates: start: 20060731, end: 20061128
  7. BACTRIM [Concomitant]
  8. VALTREX [Concomitant]
  9. ARANESP [Concomitant]
  10. NEUPOGEN [Concomitant]

REACTIONS (11)
  - HAEMATURIA [None]
  - HYDRONEPHROSIS [None]
  - HYPERKALAEMIA [None]
  - NAUSEA [None]
  - ORAL INTAKE REDUCED [None]
  - PROSTATITIS [None]
  - PYELONEPHRITIS [None]
  - RENAL FAILURE ACUTE [None]
  - TUMOUR LYSIS SYNDROME [None]
  - URINARY RETENTION [None]
  - VOMITING [None]
